FAERS Safety Report 6237670-1 (Version None)
Quarter: 2009Q2

REPORT INFORMATION
  Report Type: 
  Country: None (occurrence: None)
  Receive Date: 20090617
  Receipt Date: 20090601
  Transmission Date: 20091009
  Serious: Yes (Hospitalization, Other)
  Sender: FDA-Public Use
  Company Number: 2008S1009222

PATIENT
  Age: 51 Year
  Sex: Female
  Weight: 65.7716 kg

DRUGS (11)
  1. PHOSPHOSODA FLAVOR NOT SPECIFIED [Suspect]
     Indication: COLONOSCOPY
     Dosage: PO
     Route: 048
     Dates: start: 20050925, end: 20050925
  2. DIOVAN /01319601/ [Concomitant]
  3. PRENAIR [Concomitant]
  4. GLUCOPHAGE XR [Concomitant]
  5. ASPIRIN [Concomitant]
  6. LIPITOR [Concomitant]
  7. PREMARIN [Concomitant]
  8. PREVACID [Concomitant]
  9. BYETTA [Concomitant]
  10. VERSED [Concomitant]
  11. FENTANYL-100 [Concomitant]

REACTIONS (13)
  - ABDOMINAL DISCOMFORT [None]
  - ANAEMIA [None]
  - BLOOD GLUCOSE INCREASED [None]
  - DIARRHOEA [None]
  - DYSGEUSIA [None]
  - HAEMATURIA [None]
  - NAUSEA [None]
  - NEPHRITIS ALLERGIC [None]
  - PAIN [None]
  - RENAL FAILURE ACUTE [None]
  - RENAL TRANSPLANT [None]
  - TUBULOINTERSTITIAL NEPHRITIS [None]
  - VOMITING [None]
